FAERS Safety Report 8286283-9 (Version None)
Quarter: 2012Q1

REPORT INFORMATION
  Report Type: 
  Country: None (occurrence: None)
  Receive Date: 20120314
  Receipt Date: 20100701
  Transmission Date: 20120608
  Serious: No
  Sender: FDA-Public Use
  Company Number: PHHY2010US56012

PATIENT
  Age: 26 Year
  Sex: Male
  Weight: 91 kg

DRUGS (2)
  1. FLUORETTEN (SODIUM FLUORIDE) 03/10/2010 TO UNK [Concomitant]
  2. FANAPT [Suspect]
     Indication: PSYCHOTIC DISORDER
     Dosage: 4 MG, QD 6 MG, QHS, ORAL
     Route: 048
     Dates: start: 20100331

REACTIONS (1)
  - EJACULATION FAILURE [None]
